FAERS Safety Report 9201880 (Version 1)
Quarter: 2013Q1

REPORT INFORMATION
  Report Type: Spontaneous
  Country: US (occurrence: None)
  Receive Date: 20130328
  Receipt Date: 20130328
  Transmission Date: 20140127
  Serious: Yes (Other)
  Sender: FDA-Public Use
  Company Number: AUR-APL-2013-02559

PATIENT
  Age: 73 Year
  Sex: Female
  Weight: 66.21 kg

DRUGS (4)
  1. LISINOPRIL (LISINOPRIL) [Suspect]
     Indication: HYPERTENSION
  2. METFORMIN (METFORMIN) [Suspect]
     Indication: DIABETES MELLITUS
     Dosage: (2 IN 1 D), UNKNOWN
  3. LIPITOR (ATORVASTATIN CALCIUM) [Suspect]
     Indication: BLOOD CHOLESTEROL INCREASED
     Route: 048
  4. NIACIN [Suspect]
     Indication: PRODUCT USED FOR UNKNOWN INDICATION

REACTIONS (6)
  - Diabetes mellitus [None]
  - Hypersensitivity [None]
  - Blood pressure decreased [None]
  - Low density lipoprotein increased [None]
  - Blood triglycerides increased [None]
  - High density lipoprotein decreased [None]
